FAERS Safety Report 5077718-3 (Version None)
Quarter: 2006Q3

REPORT INFORMATION
  Report Type: 
  Country: None (occurrence: None)
  Receive Date: 20060725
  Receipt Date: 20060620
  Transmission Date: 20061208
  Serious: No
  Sender: FDA-Public Use
  Company Number: 200614289BWH

PATIENT
  Age: 59 Year
  Sex: Female

DRUGS (2)
  1. NEXAVAR [Suspect]
     Indication: SARCOMA
     Dosage: 400 MG, BID, ORAL
     Route: 048
     Dates: start: 20060601
  2. AREDIA [Concomitant]

REACTIONS (3)
  - RASH GENERALISED [None]
  - STOMATITIS [None]
  - VAGINAL LESION [None]
